FAERS Safety Report 9121957 (Version 1)
Quarter: 2020Q3

REPORT INFORMATION
  Report Type: Spontaneous
  Country: AU (occurrence: AU)
  Receive Date: 20130114
  Receipt Date: 20130114
  Transmission Date: 20201104
  Serious: Yes (Hospitalization)
  Sender: FDA-Public Use
  Company Number: AU-ASTRAZENECA-2013SE00804

PATIENT
  Age: 43 Year
  Sex: Female

DRUGS (8)
  1. PROPOFOL. [Suspect]
     Active Substance: PROPOFOL
     Route: 042
  2. DEXAMETHASONE. [Suspect]
     Active Substance: DEXAMETHASONE
     Route: 042
  3. GRANISETRON [Suspect]
     Active Substance: GRANISETRON
     Route: 042
  4. PARECOXIB SODIUM. [Suspect]
     Active Substance: PARECOXIB SODIUM
     Route: 042
  5. TRAMADOL HYDROCHLORIDE. [Suspect]
     Active Substance: TRAMADOL HYDROCHLORIDE
     Route: 042
  6. FENTANYL. [Suspect]
     Active Substance: FENTANYL
     Route: 042
  7. MIDAZOLAM HYDROCHLORIDE. [Suspect]
     Active Substance: MIDAZOLAM HYDROCHLORIDE
     Route: 042
  8. LIGNOCAINE [Suspect]
     Active Substance: LIDOCAINE HYDROCHLORIDE
     Route: 042

REACTIONS (3)
  - Seizure [Unknown]
  - Palpitations [Unknown]
  - Dyskinesia [Unknown]

NARRATIVE: CASE EVENT DATE: 20121022
